FAERS Safety Report 8493002-X (Version None)
Quarter: 2012Q2

REPORT INFORMATION
  Report Type: 
  Country: None (occurrence: None)
  Receive Date: 20120627
  Receipt Date: 20120618
  Transmission Date: 20120825
  Serious: Yes (Death)
  Sender: FDA-Public Use
  Company Number: ADR-2012-01164

PATIENT
  Sex: Male

DRUGS (1)
  1. LIORESAL [Suspect]

REACTIONS (5)
  - MULTI-ORGAN FAILURE [None]
  - CONDITION AGGRAVATED [None]
  - MEDICAL DEVICE COMPLICATION [None]
  - MUSCLE SPASTICITY [None]
  - APALLIC SYNDROME [None]
